FAERS Safety Report 5959071-3 (Version None)
Quarter: 2008Q4

REPORT INFORMATION
  Report Type: 
  Country: None (occurrence: None)
  Receive Date: 20081120
  Receipt Date: 20071012
  Transmission Date: 20090506
  Serious: No
  Sender: FDA-Public Use
  Company Number: A0687539A

PATIENT
  Age: 25 Year
  Sex: Female

DRUGS (6)
  1. WELLBUTRIN SR [Suspect]
     Indication: DEPRESSION
     Dosage: 100MG PER DAY
     Route: 048
     Dates: start: 20071009
  2. LEXAPRO [Concomitant]
  3. COREG CR [Concomitant]
  4. LISINOPRIL [Concomitant]
  5. BIRTH CONTROL PILL [Concomitant]
  6. LASIX [Concomitant]

REACTIONS (5)
  - ANXIETY [None]
  - DIZZINESS [None]
  - DYSPNOEA [None]
  - FEELING HOT [None]
  - PALPITATIONS [None]
